FAERS Safety Report 18022641 (Version 1)
Quarter: 2020Q3

REPORT INFORMATION
  Report Type: Report from Study
  Country: FR (occurrence: FR)
  Receive Date: 20200714
  Receipt Date: 20200714
  Transmission Date: 20201103
  Serious: Yes (Other)
  Sender: FDA-Public Use
  Company Number: FR-TAKEDA-2020TUS030329

PATIENT
  Age: 76 Year
  Sex: Female

DRUGS (3)
  1. BORTEZOMIB. [Suspect]
     Active Substance: BORTEZOMIB
     Indication: PLASMA CELL MYELOMA
     Dosage: 2 DOSAGE FORM, Q2WEEKS
     Route: 065
     Dates: end: 20190214
  2. DEXAMETHASONE. [Suspect]
     Active Substance: DEXAMETHASONE
     Indication: PLASMA CELL MYELOMA
     Dosage: 4 DOSAGE FORM, Q2WEEKS
     Route: 065
     Dates: end: 20190214
  3. DARZALEX [Suspect]
     Active Substance: DARATUMUMAB
     Indication: PLASMA CELL MYELOMA
     Dosage: 1 DOSAGE FORM, Q3WEEKS
     Route: 065
     Dates: end: 20190214

REACTIONS (1)
  - Plasma cell myeloma [Unknown]
